FAERS Safety Report 9381474 (Version 1)
Quarter: 2013Q3

REPORT INFORMATION
  Report Type: Spontaneous
  Country: US (occurrence: US)
  Receive Date: 20130703
  Receipt Date: 20130703
  Transmission Date: 20140515
  Serious: No
  Sender: FDA-Public Use
  Company Number: US-PFIZER INC-2013194468

PATIENT
  Age: 36 Month
  Sex: Male

DRUGS (1)
  1. JUNIOR STRENGTH ADVIL [Suspect]
     Indication: EAR INFECTION
     Dosage: UNK

REACTIONS (4)
  - Poor quality drug administered [Unknown]
  - Drug administered to patient of inappropriate age [Unknown]
  - Rash erythematous [Recovered/Resolved]
  - Product label issue [Unknown]
